FAERS Safety Report 25969050 (Version 1)
Quarter: 2025Q4

REPORT INFORMATION
  Report Type: Spontaneous
  Country: GB (occurrence: GB)
  Receive Date: 20251028
  Receipt Date: 20251028
  Transmission Date: 20260117
  Serious: Yes (Other)
  Sender: AUROBINDO
  Company Number: GB-MHRA-EMIS-978-5da75cee-c40d-4e0c-8a04-ea841248cf3d

PATIENT
  Age: 56 Year
  Sex: Female
  Weight: 121 kg

DRUGS (4)
  1. AMLODIPINE [Suspect]
     Active Substance: AMLODIPINE BESYLATE
     Indication: Product used for unknown indication
     Dosage: 1 DOSAGE FORM, ONCE A DAY
     Route: 065
     Dates: start: 20250526, end: 20250625
  2. ESTRADIOL [Concomitant]
     Active Substance: ESTRADIOL
     Indication: Hormone replacement therapy
     Dosage: UNK (ONE PATCH TO BE APPLIED TWICE WEEKLY_
     Route: 065
     Dates: start: 20250406, end: 20250519
  3. ESTRADIOL [Concomitant]
     Active Substance: ESTRADIOL
     Dosage: UNK (ONE PATCH TO BE APPLIED TWICE WEEKLY)
     Route: 065
     Dates: start: 20250606
  4. PROGESTERONE [Concomitant]
     Active Substance: PROGESTERONE
     Indication: Hormone replacement therapy
     Dosage: 2 DOSAGE FORM, ONCE A DAY
     Route: 065
     Dates: start: 20250406, end: 20250519

REACTIONS (1)
  - Joint swelling [Unknown]
